FAERS Safety Report 17217388 (Version 3)
Quarter: 2022Q3

REPORT INFORMATION
  Report Type: Spontaneous
  Country: US (occurrence: None)
  Receive Date: 20191231
  Receipt Date: 20220923
  Transmission Date: 20221026
  Serious: Yes (Other)
  Sender: FDA-Public Use
  Company Number: 2019SF88724

PATIENT
  Age: 73 Year
  Sex: Male
  Weight: 84.8 kg

DRUGS (81)
  1. PRILOSEC [Suspect]
     Active Substance: OMEPRAZOLE MAGNESIUM
     Indication: Gastrooesophageal reflux disease
     Route: 048
     Dates: start: 199901, end: 200812
  2. PRILOSEC [Suspect]
     Active Substance: OMEPRAZOLE MAGNESIUM
     Indication: Gastrooesophageal reflux disease
     Route: 048
     Dates: start: 2001
  3. PRILOSEC [Suspect]
     Active Substance: OMEPRAZOLE MAGNESIUM
     Indication: Gastrooesophageal reflux disease
     Dosage: GENERIC
     Route: 065
  4. PRILOSEC [Suspect]
     Active Substance: OMEPRAZOLE MAGNESIUM
     Indication: Gastrooesophageal reflux disease
     Dosage: GENERIC
     Route: 065
     Dates: start: 20080529, end: 20090424
  5. PRILOSEC [Suspect]
     Active Substance: OMEPRAZOLE MAGNESIUM
     Indication: Gastrooesophageal reflux disease
     Dosage: GENERIC
     Route: 065
     Dates: start: 20101018, end: 20101118
  6. PRILOSEC [Suspect]
     Active Substance: OMEPRAZOLE MAGNESIUM
     Indication: Gastrooesophageal reflux disease
     Dosage: GENERIC
     Route: 065
     Dates: start: 20110518, end: 20110615
  7. NEXIUM [Suspect]
     Active Substance: ESOMEPRAZOLE MAGNESIUM
     Indication: Gastrooesophageal reflux disease
     Route: 048
     Dates: start: 2001
  8. PREVACID [Suspect]
     Active Substance: LANSOPRAZOLE
     Indication: Gastrooesophageal reflux disease
     Route: 065
     Dates: start: 199901, end: 200812
  9. PREVACID [Suspect]
     Active Substance: LANSOPRAZOLE
     Indication: Gastrooesophageal reflux disease
     Dosage: 1-2 DAILY
     Route: 065
     Dates: start: 2001
  10. PROTONIX [Suspect]
     Active Substance: PANTOPRAZOLE SODIUM
     Indication: Gastrooesophageal reflux disease
     Route: 065
     Dates: start: 2001
  11. PROTONIX [Suspect]
     Active Substance: PANTOPRAZOLE SODIUM
     Indication: Gastrooesophageal reflux disease
     Route: 065
     Dates: start: 2004, end: 2006
  12. LIPITOR [Concomitant]
     Active Substance: ATORVASTATIN CALCIUM
     Indication: Blood cholesterol increased
     Dates: start: 200606, end: 200805
  13. PLAVIX [Concomitant]
     Active Substance: CLOPIDOGREL BISULFATE
     Indication: Cardiac disorder
     Dates: start: 200607, end: 200608
  14. PLAVIX [Concomitant]
     Active Substance: CLOPIDOGREL BISULFATE
     Indication: Cardiac disorder
     Dates: start: 200703, end: 200706
  15. NAPROXEN [Concomitant]
     Active Substance: NAPROXEN
     Indication: Pain
     Dates: start: 200609, end: 201608
  16. NAPROXEN [Concomitant]
     Active Substance: NAPROXEN
     Indication: Pain
     Dates: start: 200703, end: 200706
  17. ALLOPURINOL [Concomitant]
     Active Substance: ALLOPURINOL
     Indication: Antacid therapy
     Dates: start: 200701, end: 201501
  18. LISINOPRIL [Concomitant]
     Active Substance: LISINOPRIL
     Indication: Hypertension
     Dates: start: 200703, end: 200810
  19. LISINOPRIL [Concomitant]
     Active Substance: LISINOPRIL
     Indication: Hypertension
     Dates: start: 200903, end: 200904
  20. INDOMETHACIN [Concomitant]
     Active Substance: INDOMETHACIN
     Indication: Pain
     Dates: start: 200703, end: 200802
  21. PENICILLIN [Concomitant]
     Active Substance: PENICILLIN
     Indication: Infection
     Dates: start: 200707, end: 200708
  22. PENICILLIN [Concomitant]
     Active Substance: PENICILLIN
     Indication: Infection
     Dates: start: 200907, end: 200907
  23. PENICILLIN [Concomitant]
     Active Substance: PENICILLIN
     Indication: Infection
     Dates: start: 201303, end: 201304
  24. SIMVASTATIN [Concomitant]
     Active Substance: SIMVASTATIN
     Indication: Blood cholesterol increased
     Dates: start: 200805, end: 201202
  25. TMP/SMZ [Concomitant]
     Indication: Infection
     Dates: start: 200812, end: 200901
  26. TMP/SMZ [Concomitant]
     Indication: Infection
     Dates: start: 201310, end: 201311
  27. SPIRONOLACTONE [Concomitant]
     Active Substance: SPIRONOLACTONE
     Indication: Hypertension
     Dates: start: 200902, end: 200903
  28. MELOXICAM [Concomitant]
     Active Substance: MELOXICAM
     Indication: Pain
     Dates: start: 201012, end: 201101
  29. MELOXICAM [Concomitant]
     Active Substance: MELOXICAM
     Indication: Pain
     Dates: start: 201208, end: 201209
  30. MELOXICAM [Concomitant]
     Active Substance: MELOXICAM
     Indication: Pain
     Dates: start: 201401, end: 201402
  31. LOSARTAN [Concomitant]
     Active Substance: LOSARTAN
     Indication: Hypertension
     Dates: start: 201103, end: 201501
  32. TRAMADOL [Concomitant]
     Active Substance: TRAMADOL
     Indication: Pain
     Dates: start: 201106, end: 201201
  33. TRAMADOL [Concomitant]
     Active Substance: TRAMADOL
     Indication: Pain
     Dates: start: 201306, end: 201307
  34. TRAMADOL [Concomitant]
     Active Substance: TRAMADOL
     Indication: Pain
     Dates: start: 201406, end: 201501
  35. ATORVASTATIN [Concomitant]
     Active Substance: ATORVASTATIN
     Indication: Blood cholesterol increased
     Dates: start: 201201, end: 201412
  36. DICLOFENAC [Concomitant]
     Active Substance: DICLOFENAC
     Indication: Pain
     Dates: start: 201201, end: 201203
  37. CIPROFLOXACIN [Concomitant]
     Active Substance: CIPROFLOXACIN
     Indication: Infection
     Dates: start: 201209, end: 201210
  38. SEVELAMER [Concomitant]
     Active Substance: SEVELAMER
  39. MIDODRINE [Concomitant]
     Active Substance: MIDODRINE
  40. LEVOTHYROXINE [Concomitant]
     Active Substance: LEVOTHYROXINE
  41. GABAPENTIN [Concomitant]
     Active Substance: GABAPENTIN
  42. MECLIZINE [Concomitant]
     Active Substance: MECLIZINE HYDROCHLORIDE
  43. OXYCODONE [Concomitant]
     Active Substance: OXYCODONE
  44. ROSUVASTATIN [Concomitant]
     Active Substance: ROSUVASTATIN
  45. HUMALOG [Concomitant]
     Active Substance: INSULIN LISPRO
  46. KLOR-CON [Concomitant]
     Active Substance: POTASSIUM CHLORIDE
  47. METOLAZONE [Concomitant]
     Active Substance: METOLAZONE
  48. BUMETANIDE [Concomitant]
     Active Substance: BUMETANIDE
  49. SERTRALINE [Concomitant]
     Active Substance: SERTRALINE HYDROCHLORIDE
  50. RELION [Concomitant]
  51. LYRICA [Concomitant]
     Active Substance: PREGABALIN
  52. LANTUS [Concomitant]
     Active Substance: INSULIN GLARGINE
  53. STAGESIC [Concomitant]
     Active Substance: ACETAMINOPHEN\HYDROCODONE BITARTRATE
  54. ZYMAR [Concomitant]
     Active Substance: GATIFLOXACIN
  55. NITROLINGUAL [Concomitant]
     Active Substance: NITROGLYCERIN
  56. FEXOFENADINE [Concomitant]
     Active Substance: FEXOFENADINE HYDROCHLORIDE
  57. SALSALATE [Concomitant]
     Active Substance: SALSALATE
  58. LEVEMIR [Concomitant]
     Active Substance: INSULIN DETEMIR
  59. CEPHALEXIN [Concomitant]
     Active Substance: CEPHALEXIN
  60. LEVOXYL [Concomitant]
     Active Substance: LEVOTHYROXINE SODIUM
  61. CROMOLYN [Concomitant]
     Active Substance: CROMOLYN
  62. LINZESS [Concomitant]
     Active Substance: LINACLOTIDE
  63. CRESTOR [Concomitant]
     Active Substance: ROSUVASTATIN CALCIUM
  64. MEGACE [Concomitant]
     Active Substance: MEGESTROL ACETATE
  65. ASPIRIN [Concomitant]
     Active Substance: ASPIRIN
  66. RENVELA [Concomitant]
     Active Substance: SEVELAMER CARBONATE
  67. DIALYVITE [Concomitant]
     Active Substance: ASCORBIC ACID\BIOTIN\CALCIUM PANTOTHENATE\COBALAMIN\FOLIC ACID\NIACINAMIDE\PYRIDOXINE HYDROCHLORIDE\
  68. METOPROLOL TARTRATE [Concomitant]
     Active Substance: METOPROLOL TARTRATE
  69. VITAMIN D3 [Concomitant]
     Active Substance: CHOLECALCIFEROL
  70. VITAMINS [Concomitant]
     Active Substance: VITAMINS
  71. DILTIAZEM [Concomitant]
     Active Substance: DILTIAZEM
  72. LASIX [Concomitant]
     Active Substance: FUROSEMIDE
  73. NORCO [Concomitant]
     Active Substance: ACETAMINOPHEN\HYDROCODONE BITARTRATE
  74. SEROQUEL [Concomitant]
     Active Substance: QUETIAPINE FUMARATE
  75. AMBIEN [Concomitant]
     Active Substance: ZOLPIDEM TARTRATE
  76. SILVADENE [Concomitant]
     Active Substance: SILVER SULFADIAZINE
  77. GENTAMICIN [Concomitant]
     Active Substance: GENTAMICIN
  78. ASPIRIN [Concomitant]
     Active Substance: ASPIRIN
  79. BACTRIM [Concomitant]
     Active Substance: SULFAMETHOXAZOLE\TRIMETHOPRIM
  80. CLINDAMYCIN [Concomitant]
     Active Substance: CLINDAMYCIN
  81. ZOFRAN [Concomitant]
     Active Substance: ONDANSETRON HYDROCHLORIDE

REACTIONS (3)
  - Chronic kidney disease [Unknown]
  - Acute kidney injury [Unknown]
  - Renal failure [Unknown]

NARRATIVE: CASE EVENT DATE: 20170101
